FAERS Safety Report 16961342 (Version 1)
Quarter: 2019Q4

REPORT INFORMATION
  Report Type: Spontaneous
  Country: US (occurrence: US)
  Receive Date: 20190906
  Receipt Date: 20190906
  Transmission Date: 20200122
  Serious: Yes (Other)
  Sender: FDA-Public Use
  Company Number: None

PATIENT
  Age: 56 Year
  Sex: Female
  Weight: 58.1 kg

DRUGS (1)
  1. CREST WHITENING SYSTEM STRIPS WHITESTRIPS CLASSIC VIVID NO FLAVOR SCEN [Suspect]
     Active Substance: HYDROGEN PEROXIDE

REACTIONS (14)
  - Abscess [None]
  - Device adhesion issue [None]
  - Gingival discomfort [None]
  - Lymphoedema [None]
  - Goitre [None]
  - Tooth abscess [None]
  - Weight decreased [None]
  - Sinus pain [None]
  - Swelling face [None]
  - Sinus disorder [None]
  - Device physical property issue [None]
  - Toothache [None]
  - Sensation of foreign body [None]
  - Hyperaesthesia teeth [None]

NARRATIVE: CASE EVENT DATE: 20180904
